FAERS Safety Report 18177057 (Version 1)
Quarter: 2020Q3

REPORT INFORMATION
  Report Type: Spontaneous
  Country: US (occurrence: US)
  Receive Date: 20200821
  Receipt Date: 20200821
  Transmission Date: 20201103
  Serious: Yes (Hospitalization, Other)
  Sender: FDA-Public Use
  Company Number: US-SUN PHARMACEUTICAL INDUSTRIES LTD-2020R1-257644

PATIENT
  Age: 84 Year
  Sex: Male

DRUGS (2)
  1. CIPROFLOXACIN. [Suspect]
     Active Substance: CIPROFLOXACIN
     Indication: INFECTION
     Dosage: UNK
     Route: 065
  2. DOCETAXEL. [Suspect]
     Active Substance: DOCETAXEL
     Indication: PROSTATE CANCER
     Dosage: UNK
     Route: 065

REACTIONS (6)
  - Anticoagulation drug level above therapeutic [Unknown]
  - Leukopenia [Recovered/Resolved]
  - Necrotising oesophagitis [Unknown]
  - Neutropenia [Recovered/Resolved]
  - Bacterial infection [Unknown]
  - Anaemia [Unknown]
